FAERS Safety Report 12162425 (Version 1)
Quarter: 2016Q1

REPORT INFORMATION
  Report Type: Spontaneous
  Country: US (occurrence: None)
  Receive Date: 20160308
  Receipt Date: 20160308
  Transmission Date: 20160526
  Serious: Yes (Disabling, Other)
  Sender: FDA-Public Use
  Company Number: None

PATIENT
  Age: 72 Year
  Sex: Female
  Weight: 80.29 kg

DRUGS (9)
  1. NEXIUM [Concomitant]
     Active Substance: ESOMEPRAZOLE MAGNESIUM
  2. LETROZOLE. [Suspect]
     Active Substance: LETROZOLE
     Indication: BREAST CANCER
     Dosage: 2.5 MG 1 TABLET, DAILY, MOUTH
     Dates: start: 20151012, end: 20160110
  3. REGONOL [Concomitant]
     Active Substance: PYRIDOSTIGMINE BROMIDE
  4. UTE [Concomitant]
  5. MILCALCIN [Concomitant]
  6. VITAMIN C [Concomitant]
     Active Substance: ASCORBIC ACID
  7. VIT. B12 [Concomitant]
  8. CALCIUM [Concomitant]
     Active Substance: CALCIUM
  9. NEBULIZER [Concomitant]
     Active Substance: DEVICE

REACTIONS (4)
  - Arthralgia [None]
  - Rash [None]
  - Urticaria [None]
  - Inflammation [None]

NARRATIVE: CASE EVENT DATE: 20151012
